FAERS Safety Report 9405712 (Version 2)
Quarter: 2013Q3

REPORT INFORMATION
  Report Type: Spontaneous
  Country: US (occurrence: US)
  Receive Date: 20130717
  Receipt Date: 20130719
  Transmission Date: 20140515
  Serious: Yes (Other)
  Sender: FDA-Public Use
  Company Number: CHPA2013US010347

PATIENT
  Age: 87 Year
  Sex: Female

DRUGS (2)
  1. VOLTAREN GEL [Suspect]
     Indication: PAIN
     Dosage: A LITTLE BIT, UNK
     Route: 061
     Dates: start: 2008
  2. VOLTAREN GEL [Suspect]
     Indication: ARTHRITIS

REACTIONS (7)
  - Arthritis [Not Recovered/Not Resolved]
  - Back pain [Not Recovered/Not Resolved]
  - Pain [Not Recovered/Not Resolved]
  - Arthralgia [Not Recovered/Not Resolved]
  - Drug ineffective for unapproved indication [Unknown]
  - Drug administered at inappropriate site [Unknown]
  - Wrong technique in drug usage process [Unknown]
